FAERS Safety Report 17253357 (Version 1)
Quarter: 2020Q1

REPORT INFORMATION
  Report Type: Spontaneous
  Country: FR (occurrence: FR)
  Receive Date: 20200109
  Receipt Date: 20200109
  Transmission Date: 20200409
  Serious: Yes (Hospitalization)
  Sender: FDA-Public Use
  Company Number: NVSC2020FR002638

PATIENT
  Age: 61 Year
  Sex: Male
  Weight: 67.7 kg

DRUGS (14)
  1. BICARBONATE SODIUM [Suspect]
     Active Substance: SODIUM BICARBONATE
     Indication: RENAL FAILURE
     Dosage: 1000 MG, QD
     Route: 048
     Dates: start: 20161031, end: 20190717
  2. PENTACARINAT [Suspect]
     Active Substance: PENTAMIDINE ISETHIONATE
     Indication: ANTIBIOTIC PROPHYLAXIS
     Dosage: 300 MG, QMO
     Route: 055
     Dates: start: 20160927
  3. ZYRTEC [Suspect]
     Active Substance: CETIRIZINE HYDROCHLORIDE
     Indication: PRODUCT USED FOR UNKNOWN INDICATION
     Dosage: 10 MG, QD (1-0-0)
     Route: 048
     Dates: start: 20190522
  4. EPREX [Concomitant]
     Active Substance: ERYTHROPOIETIN
     Indication: ANAEMIA
     Dosage: 8000 IU, QMO
     Route: 058
     Dates: start: 20170914, end: 20190717
  5. CERTICAN [Suspect]
     Active Substance: EVEROLIMUS
     Indication: PROPHYLAXIS AGAINST TRANSPLANT REJECTION
     Dosage: 2.5 MG, QD (1.25 MG MATIN ET SOIR)
     Route: 048
     Dates: start: 20160914, end: 20191008
  6. LIPTRUZET [Suspect]
     Active Substance: ATORVASTATIN CALCIUM\EZETIMIBE
     Indication: DYSLIPIDAEMIA
     Dosage: 1 DF, QD (0-0-1)
     Route: 048
     Dates: start: 20171222
  7. TEMERIT [Suspect]
     Active Substance: NEBIVOLOL
     Indication: CARDIAC FAILURE
     Dosage: 10 MG, QD (1-0-1)
     Route: 048
     Dates: start: 20170606
  8. LASILIX [Suspect]
     Active Substance: FUROSEMIDE
     Indication: CARDIAC FAILURE
     Dosage: 40 MG, QD(1-0-0)
     Route: 048
     Dates: start: 20190522
  9. INEXIUM [Concomitant]
     Active Substance: ESOMEPRAZOLE
     Indication: PROPHYLAXIS AGAINST GASTROINTESTINAL ULCER
     Dosage: 20 MG, QD (1-0-0)
     Route: 048
     Dates: start: 201603
  10. DOLIPRANE [Concomitant]
     Active Substance: ACETAMINOPHEN
     Indication: PAIN
     Dosage: 1 G SI BESOIN (MAX4/JOUR)
     Route: 048
     Dates: start: 201603
  11. AMLOR [Suspect]
     Active Substance: AMLODIPINE BESYLATE
     Indication: HYPERTENSION
     Dosage: 10 MG, QD (0-0-1)
     Route: 048
     Dates: start: 20170103
  12. CELLCEPT [Concomitant]
     Active Substance: MYCOPHENOLATE MOFETIL\MYCOPHENOLATE MOFETIL HYDROCHLORIDE
     Indication: PROPHYLAXIS AGAINST TRANSPLANT REJECTION
     Dosage: 1500 MG, QD (3-0-3)
     Route: 048
     Dates: start: 201603
  13. KARDEGIC [Concomitant]
     Active Substance: ASPIRIN DL-LYSINE
     Indication: HEART TRANSPLANT
     Dosage: 75 MG, QD (1-0-0)
     Route: 048
     Dates: start: 201603
  14. CORTANCYL [Concomitant]
     Active Substance: PREDNISONE
     Indication: PROPHYLAXIS AGAINST TRANSPLANT REJECTION
     Dosage: 7.5 MG, QD(1.5 CP/JOUR )
     Route: 048
     Dates: start: 201603

REACTIONS (2)
  - Anaemia [Recovering/Resolving]
  - Pyrexia [Recovering/Resolving]

NARRATIVE: CASE EVENT DATE: 2019
